FAERS Safety Report 9370883 (Version 1)
Quarter: 2013Q2

REPORT INFORMATION
  Report Type: Report from Study
  Country: US (occurrence: US)
  Receive Date: 20130626
  Receipt Date: 20130626
  Transmission Date: 20140414
  Serious: Yes (Hospitalization)
  Sender: FDA-Public Use
  Company Number: US-BRISTOL-MYERS SQUIBB COMPANY-19015353

PATIENT
  Age: 69 Year
  Sex: Male

DRUGS (15)
  1. BYETTA [Suspect]
     Indication: TYPE 2 DIABETES MELLITUS
     Dosage: LAST DOSE:24MAR2013
     Route: 058
     Dates: start: 20130211
  2. MULTIVITAMIN [Concomitant]
     Indication: VITAMIN SUPPLEMENTATION
     Dates: start: 2004
  3. ASPIRIN [Concomitant]
     Indication: ANTIPLATELET THERAPY
     Dates: start: 2003
  4. GLUCOPHAGE [Concomitant]
     Indication: DIABETES MELLITUS
     Dates: start: 2004
  5. VITAMIN B12 [Concomitant]
     Indication: VITAMIN SUPPLEMENTATION
     Dates: start: 2004
  6. LEVOTHYROXINE [Concomitant]
     Indication: THYROID DISORDER
     Dates: start: 2002
  7. DIOVAN [Concomitant]
     Indication: HYPERTENSION
     Dosage: 2004-2011,160MG,QD?2011-ONG,160MG,QD
     Dates: start: 2004
  8. LISINOPRIL [Concomitant]
     Indication: HYPERTENSION
     Dates: start: 2006
  9. GLIPIZIDE [Concomitant]
     Dosage: 10MG TID 2008-01MAY2012?10MG 2 AM,1 NOON 2 PM -50MG,1JUN2012-ONG
     Dates: start: 2008
  10. ARICEPT [Concomitant]
     Indication: MEMORY IMPAIRMENT
     Dates: start: 201210
  11. LASIX [Concomitant]
     Indication: OEDEMA PERIPHERAL
     Dates: start: 20121218
  12. L-ARGININE [Concomitant]
     Indication: SEXUAL DYSFUNCTION
     Dates: start: 201201
  13. KELP [Concomitant]
     Dosage: CAPS
     Dates: start: 2011
  14. IRON [Concomitant]
     Dates: start: 201210
  15. PLAVIX [Concomitant]
     Dates: start: 201304

REACTIONS (1)
  - Coronary artery disease [Recovered/Resolved]
